FAERS Safety Report 21981330 (Version 1)
Quarter: 2023Q1

REPORT INFORMATION
  Report Type: Spontaneous
  Country: TR (occurrence: TR)
  Receive Date: 20230211
  Receipt Date: 20230211
  Transmission Date: 20230418
  Serious: Yes (Life-Threatening, Other)
  Sender: FDA-Public Use
  Company Number: TR-AMGEN-TURSP2023021476

PATIENT

DRUGS (14)
  1. BEVACIZUMAB [Suspect]
     Active Substance: BEVACIZUMAB
     Indication: Neuroblastoma
     Dosage: UNK
     Route: 065
  2. VINCRISTINE [Concomitant]
     Active Substance: VINCRISTINE
     Indication: Neuroblastoma
     Dosage: UNK
  3. DACARBAZINE [Concomitant]
     Active Substance: DACARBAZINE
     Indication: Neuroblastoma
     Dosage: UNK
  4. DOXORUBICIN [Concomitant]
     Active Substance: DOXORUBICIN
     Indication: Neuroblastoma
     Dosage: UNK
  5. IFOSFAMIDE [Concomitant]
     Active Substance: IFOSFAMIDE
     Indication: Neuroblastoma
     Dosage: UNK
  6. ETOPOSIDE [Concomitant]
     Active Substance: ETOPOSIDE
     Indication: Neuroblastoma
     Dosage: UNK
     Route: 065
  7. CISPLATIN [Concomitant]
     Active Substance: CISPLATIN
     Indication: Neuroblastoma
     Dosage: UNK
  8. CYCLOPHOSPHAMIDE [Concomitant]
     Active Substance: CYCLOPHOSPHAMIDE
     Indication: Neuroblastoma
     Dosage: UNK
  9. TEMSIROLIMUS [Concomitant]
     Active Substance: TEMSIROLIMUS
     Indication: Neuroblastoma
     Dosage: UNK
  10. TOPOTECAN [Concomitant]
     Active Substance: TOPOTECAN HYDROCHLORIDE
     Indication: Neuroblastoma
     Dosage: UNK
     Route: 065
  11. TEMOZOLOMIDE [Concomitant]
     Active Substance: TEMOZOLOMIDE
     Indication: Neuroblastoma
     Dosage: 100 MILLIGRAM PER SQUARE METRE PER DOSE, ON DAYS 0-4
     Route: 048
  12. SUNITINIB [Concomitant]
     Active Substance: SUNITINIB
     Indication: Neuroblastoma
     Dosage: UNK
  13. IRINOTECAN [Concomitant]
     Active Substance: IRINOTECAN
     Indication: Neuroblastoma
     Dosage: 50 MILLIGRAM PER SQUARE METRE PER DOSE, ON DAYS 0-4
     Route: 040
  14. RAPAMYCIN [Concomitant]
     Active Substance: SIROLIMUS
     Indication: Neuroblastoma
     Dosage: UNK

REACTIONS (21)
  - Hypertransaminasaemia [Unknown]
  - Thrombocytopenia [Unknown]
  - Leukopenia [Unknown]
  - Neutropenic sepsis [Unknown]
  - Device related infection [Unknown]
  - Capillary leak syndrome [Unknown]
  - Hypoxia [Unknown]
  - Drug ineffective for unapproved indication [Unknown]
  - Tachycardia [Unknown]
  - Pruritus [Unknown]
  - Extravasation [Unknown]
  - Rash [Unknown]
  - Off label use [Unknown]
  - Pyrexia [Unknown]
  - Anaemia [Unknown]
  - Pain [Unknown]
  - Diarrhoea [Unknown]
  - Nausea [Unknown]
  - Vomiting [Unknown]
  - Hypertension [Unknown]
  - Decreased appetite [Unknown]
